FAERS Safety Report 9026079 (Version 1)
Quarter: 2012Q4

REPORT INFORMATION
  Report Type: Spontaneous
  Country: US (occurrence: None)
  Receive Date: 20121217
  Receipt Date: 20121217
  Transmission Date: 20130627
  Serious: Yes (Other)
  Sender: FDA-Public Use
  Company Number: None

PATIENT

DRUGS (2)
  1. CLONAZEPAM [Suspect]
  2. DIAZEPAM [Suspect]

REACTIONS (6)
  - Medication error [None]
  - Circumstance or information capable of leading to medication error [None]
  - Tablet physical issue [None]
  - Product colour issue [None]
  - Product packaging issue [None]
  - Product shape issue [None]
